FAERS Safety Report 19493933 (Version 2)
Quarter: 2021Q4

REPORT INFORMATION
  Report Type: Report from Study
  Country: JP (occurrence: JP)
  Receive Date: 20210705
  Receipt Date: 20211004
  Transmission Date: 20220303
  Serious: Yes (Other)
  Sender: FDA-Public Use
  Company Number: JP-TAKEDA-2021TEU006039

PATIENT
  Age: 64 Year
  Sex: Male

DRUGS (5)
  1. FIBRINOGEN HUMAN\THROMBIN HUMAN [Suspect]
     Active Substance: FIBRINOGEN HUMAN\THROMBIN HUMAN
     Indication: Cerebrospinal fluid leakage
     Dosage: 10 MILLILITER
     Route: 037
  2. FIBRINOGEN HUMAN\THROMBIN HUMAN [Suspect]
     Active Substance: FIBRINOGEN HUMAN\THROMBIN HUMAN
     Indication: Intracranial hypotension
  3. ASPIRIN [Concomitant]
     Active Substance: ASPIRIN
     Dosage: 100 MILLIGRAM
  4. CLOPIDOGREL [Concomitant]
     Active Substance: CLOPIDOGREL BISULFATE
     Dosage: 75 MILLIGRAM
  5. MANNITOL [Concomitant]
     Active Substance: MANNITOL
     Dosage: UNK

REACTIONS (2)
  - Subdural haematoma [Unknown]
  - Product preparation issue [Unknown]
